FAERS Safety Report 9291151 (Version 1)
Quarter: 2013Q2

REPORT INFORMATION
  Report Type: Report from Study
  Country: GW (occurrence: GW)
  Receive Date: 20130515
  Receipt Date: 20130515
  Transmission Date: 20140414
  Serious: Yes (Hospitalization)
  Sender: FDA-Public Use
  Company Number: GW-ABBOTT-13P-071-1085493-00

PATIENT
  Age: 38 Year
  Sex: Male

DRUGS (5)
  1. KALETRA TABLETS 100/25 [Suspect]
     Indication: HIV INFECTION
     Dosage: 800/200MG (200/50MG, 4 IN 1 D)
     Route: 048
     Dates: start: 20121128
  2. TENOFOVIR [Concomitant]
     Indication: HIV INFECTION
     Route: 048
     Dates: start: 20121128
  3. EMTRICITABINE [Concomitant]
     Indication: HIV INFECTION
     Dates: start: 20121128
  4. COTRIMAXAZOLE [Concomitant]
     Indication: PROPHYLAXIS
     Route: 048
     Dates: start: 20121128
  5. FOLIC ACID [Concomitant]
     Indication: VITAMIN SUPPLEMENTATION
     Route: 048
     Dates: start: 20121128

REACTIONS (1)
  - Unevaluable event [Recovered/Resolved]
